FAERS Safety Report 19976319 (Version 1)
Quarter: 2021Q4

REPORT INFORMATION
  Report Type: Spontaneous
  Country: US (occurrence: US)
  Receive Date: 20211020
  Receipt Date: 20211020
  Transmission Date: 20220303
  Serious: No
  Sender: FDA-Public Use
  Company Number: US-ALLERGAN-2122164US

PATIENT
  Age: 37 Year
  Sex: Male
  Weight: 70.3 kg

DRUGS (2)
  1. LINZESS [Suspect]
     Active Substance: LINACLOTIDE
     Indication: Constipation
     Dosage: ACTUAL: 145 MCG ORALLY ONCE A DAY 30 MIN BEFORE BREAKFAST
     Route: 048
     Dates: start: 20210604, end: 20210605
  2. LINZESS [Suspect]
     Active Substance: LINACLOTIDE
     Indication: Gastric disorder

REACTIONS (9)
  - Abdominal discomfort [Recovering/Resolving]
  - Frequent bowel movements [Recovered/Resolved]
  - Abdominal pain upper [Recovering/Resolving]
  - Abdominal pain [Recovered/Resolved]
  - Diarrhoea [Recovered/Resolved]
  - Defaecation urgency [Recovered/Resolved]
  - Flatulence [Recovered/Resolved]
  - Abdominal distension [Recovered/Resolved]
  - Drug ineffective [Unknown]

NARRATIVE: CASE EVENT DATE: 20210604
